FAERS Safety Report 10229187 (Version 1)
Quarter: 2014Q2

REPORT INFORMATION
  Report Type: Spontaneous
  Country: GB (occurrence: GB)
  Receive Date: 20140611
  Receipt Date: 20140611
  Transmission Date: 20141212
  Serious: Yes (Other)
  Sender: FDA-Public Use
  Company Number: GB-DRREDDYS-GER/UKI/14/0041001

PATIENT
  Age: 43 Year
  Sex: Male
  Weight: 90 kg

DRUGS (3)
  1. CETIRIZINE [Suspect]
     Indication: SEASONAL ALLERGY
     Route: 048
     Dates: start: 20080401, end: 20110501
  2. CETIRIZINE [Suspect]
     Indication: RHINITIS
  3. SALBUTAMOL [Concomitant]
     Indication: ASTHMA

REACTIONS (3)
  - Anxiety [Recovered/Resolved with Sequelae]
  - Heart rate increased [Recovered/Resolved]
  - Malaise [Recovered/Resolved]
